FAERS Safety Report 8583900-0 (Version None)
Quarter: 2012Q3

REPORT INFORMATION
  Report Type: 
  Country: None (occurrence: None)
  Receive Date: 20120810
  Receipt Date: 20120802
  Transmission Date: 20120928
  Serious: Yes (Life-Threatening)
  Sender: FDA-Public Use
  Company Number: GB-009507513-1208GBR002075

PATIENT

DRUGS (6)
  1. VALGANCICLOVIR HCL [Concomitant]
  2. EZETIMIBE [Suspect]
     Dosage: 10 MG, UNK
     Route: 048
  3. LANSOPRAZOLE [Suspect]
     Dosage: 30 MG, QD
     Route: 048
     Dates: start: 20091201, end: 20120112
  4. CINACALCET HYDROCHLORIDE [Concomitant]
  5. TACROLIMUS [Concomitant]
  6. SULFAMETHOXAZOLE AND TRIMETHOPRIM [Suspect]
     Dosage: 480 MG, QD
     Route: 048
     Dates: start: 20110701

REACTIONS (1)
  - NEUTROPENIA [None]
